FAERS Safety Report 18565984 (Version 2)
Quarter: 2021Q1

REPORT INFORMATION
  Report Type: Spontaneous
  Country: US (occurrence: US)
  Receive Date: 20201201
  Receipt Date: 20210201
  Transmission Date: 20210419
  Serious: No
  Sender: FDA-Public Use
  Company Number: US-JNJFOC-20201116331

PATIENT
  Age: 54 Year
  Sex: Female
  Weight: 59.9 kg

DRUGS (2)
  1. ELMIRON [Suspect]
     Active Substance: PENTOSAN POLYSULFATE SODIUM
     Route: 048
  2. ELMIRON [Suspect]
     Active Substance: PENTOSAN POLYSULFATE SODIUM
     Indication: CYSTITIS INTERSTITIAL
     Dosage: 2 CAPSULES/2 TIMES A DAY.?RECEIVED DOSE FOR MANY YEARS
     Route: 048
     Dates: start: 2011

REACTIONS (2)
  - Incorrect dose administered [Unknown]
  - Off label use [Unknown]
